FAERS Safety Report 7204671-6 (Version None)
Quarter: 2010Q4

REPORT INFORMATION
  Report Type: 
  Country: None (occurrence: None)
  Receive Date: 20101230
  Receipt Date: 20101221
  Transmission Date: 20110411
  Serious: No
  Sender: FDA-Public Use
  Company Number: US-PFIZER INC-2010177491

PATIENT
  Sex: Female

DRUGS (4)
  1. EFFEXOR XR [Suspect]
     Indication: DEPRESSION
     Dosage: 37.5 MG, 1X/DAY
     Route: 048
     Dates: start: 20100709, end: 20100926
  2. EFFEXOR XR [Suspect]
     Dosage: 75 MG, 1X/DAY
     Route: 048
     Dates: start: 20100927, end: 20101015
  3. EFFEXOR XR [Suspect]
     Dosage: 37.5MG DAILY ADN 75MG DAILY
     Route: 048
     Dates: start: 20101016
  4. SYNTHROID [Suspect]
     Indication: HYPOTHYROIDISM
     Dosage: 25 UG, 1X/DAY
     Route: 048

REACTIONS (2)
  - ABDOMINAL DISCOMFORT [None]
  - FLATULENCE [None]
